FAERS Safety Report 16933870 (Version 1)
Quarter: 2019Q4

REPORT INFORMATION
  Report Type: Spontaneous
  Country: US (occurrence: US)
  Receive Date: 20190827
  Receipt Date: 20190827
  Transmission Date: 20200122
  Serious: Yes (Death)
  Sender: FDA-Public Use
  Company Number: None

PATIENT
  Age: 65 Year
  Sex: Female

DRUGS (14)
  1. PROCRIT [Suspect]
     Active Substance: ERYTHROPOIETIN
     Indication: SICKLE CELL DISEASE
     Dosage: ?          OTHER DOSE:5,000 UNITS;?
     Route: 058
     Dates: start: 20130319
  2. DILAUDIO [Concomitant]
  3. FOLIC ACID. [Concomitant]
     Active Substance: FOLIC ACID
  4. HYDREA [Concomitant]
     Active Substance: HYDROXYUREA
  5. VALIUM [Concomitant]
     Active Substance: DIAZEPAM
  6. COUMADIN [Concomitant]
     Active Substance: WARFARIN SODIUM
  7. ALMODIPINE [Concomitant]
  8. EFFEXOR [Concomitant]
     Active Substance: VENLAFAXINE HYDROCHLORIDE
  9. AMITRIPTYLIN [Concomitant]
     Active Substance: AMITRIPTYLINE
  10. NEXIUM [Concomitant]
     Active Substance: ESOMEPRAZOLE MAGNESIUM
  11. DEXILIANT [Concomitant]
  12. COZARR [Concomitant]
  13. PHENEGRAN [Concomitant]
  14. URECHOLINE [Concomitant]
     Active Substance: BETHANECHOL CHLORIDE

REACTIONS (1)
  - Death [None]

NARRATIVE: CASE EVENT DATE: 2019
